FAERS Safety Report 6772873-9 (Version None)
Quarter: 2010Q2

REPORT INFORMATION
  Report Type: 
  Country: None (occurrence: None)
  Receive Date: 20100616
  Receipt Date: 20100604
  Transmission Date: 20101027
  Serious: Yes (Other)
  Sender: FDA-Public Use
  Company Number: JP-ELI_LILLY_AND_COMPANY-JP201006001211

PATIENT
  Sex: Female

DRUGS (1)
  1. ZYPREXA [Suspect]
     Route: 048
     Dates: start: 20100406

REACTIONS (2)
  - RENAL FAILURE [None]
  - URINARY RETENTION [None]
